FAERS Safety Report 16699660 (Version 1)
Quarter: 2019Q3

REPORT INFORMATION
  Report Type: Report from Study
  Country: JP (occurrence: JP)
  Receive Date: 20190813
  Receipt Date: 20190813
  Transmission Date: 20191004
  Serious: Yes (Hospitalization)
  Sender: FDA-Public Use
  Company Number: JP-PFIZER INC-2017508797

PATIENT
  Age: 79 Year
  Sex: Female
  Weight: 44 kg

DRUGS (29)
  1. METHOTREXATE. [Suspect]
     Active Substance: METHOTREXATE
     Dosage: 5 MG, WEEKLY
     Route: 065
     Dates: end: 20170112
  2. CARERAM [Concomitant]
     Active Substance: IGURATIMOD
     Indication: RHEUMATOID ARTHRITIS
     Dosage: UNK
     Dates: start: 20170203, end: 20180911
  3. FLOMOX [Concomitant]
     Indication: DRUG ERUPTION
     Dosage: UNK
     Route: 048
  4. TAKEPRON [Concomitant]
     Active Substance: LANSOPRAZOLE
     Route: 048
  5. KENACORT A [Concomitant]
     Dosage: UNK
     Dates: start: 20170313, end: 20170313
  6. KENACORT A [Concomitant]
     Dosage: UNK
     Dates: start: 20181031
  7. METHOTREXATE. [Suspect]
     Active Substance: METHOTREXATE
     Dosage: 6 MG, WEEKLY
     Route: 065
     Dates: start: 20170510
  8. METHYCOBAL [Concomitant]
     Active Substance: METHYLCOBALAMIN
     Indication: ORAL HERPES
     Dosage: UNK
     Route: 048
  9. KENACORT A [Concomitant]
     Dosage: UNK
     Dates: start: 20170414, end: 20170414
  10. ISODINE [Concomitant]
     Active Substance: POVIDONE-IODINE
     Indication: DRUG ERUPTION
     Dosage: UNK
     Route: 061
  11. LYRICA [Concomitant]
     Active Substance: PREGABALIN
     Indication: ORAL HERPES
     Dosage: UNK
     Route: 048
  12. CALONAL [Concomitant]
     Active Substance: ACETAMINOPHEN
     Indication: ORAL HERPES
     Dosage: UNK
     Route: 048
  13. ARASENA A [Concomitant]
     Active Substance: VIDARABINE
     Indication: ORAL HERPES
     Dosage: UNK
     Route: 061
  14. KENACORT A [Concomitant]
     Indication: RHEUMATOID ARTHRITIS
     Dosage: UNK
     Dates: start: 20170113, end: 20170113
  15. CELECOX [Concomitant]
     Active Substance: CELECOXIB
     Indication: RHEUMATOID ARTHRITIS
     Dosage: 200 MG, DAILY
     Route: 048
     Dates: start: 20170825
  16. METHOTREXATE. [Suspect]
     Active Substance: METHOTREXATE
     Dosage: 7.5 MG, WEEKLY
     Route: 065
     Dates: start: 20170113, end: 20170209
  17. BENET [Concomitant]
     Active Substance: RISEDRONATE SODIUM
     Dosage: UNK
     Route: 048
  18. FOLIAMIN [Concomitant]
     Active Substance: FOLIC ACID
     Route: 048
  19. KENACORT A [Concomitant]
     Dosage: UNK
     Dates: start: 20170203, end: 20170203
  20. KENACORT A [Concomitant]
     Dosage: UNK
     Dates: start: 20170607, end: 20170607
  21. BONALON [Concomitant]
     Active Substance: ALENDRONATE SODIUM
     Dosage: UNK
     Route: 048
     Dates: start: 20170323
  22. SYNVISC [Concomitant]
     Active Substance: HYLAN G-F 20
     Dosage: UNK
     Dates: start: 20170323
  23. AURANOFIN [Concomitant]
     Active Substance: AURANOFIN
     Dosage: UNK
     Dates: start: 20181031
  24. XELJANZ [Suspect]
     Active Substance: TOFACITINIB CITRATE
     Dosage: 5 MG, 2X/DAY
     Dates: start: 20170113, end: 20170131
  25. XELJANZ [Suspect]
     Active Substance: TOFACITINIB CITRATE
     Dosage: 5 MG, 2X/DAY
     Dates: start: 20170207
  26. GENTACIN [Concomitant]
     Active Substance: GENTAMICIN SULFATE
     Indication: DRUG ERUPTION
     Dosage: UNK
     Route: 061
  27. EDIROL [Concomitant]
     Active Substance: ELDECALCITOL
     Indication: OSTEOPOROSIS
     Dosage: UNK
     Route: 048
     Dates: start: 20180620
  28. VALTREX [Concomitant]
     Active Substance: VALACYCLOVIR HYDROCHLORIDE
     Indication: ORAL HERPES
     Dosage: UNK
     Route: 048
  29. KENACORT A [Concomitant]
     Dosage: UNK
     Dates: start: 20170510, end: 20170510

REACTIONS (2)
  - Diverticulum intestinal [Recovered/Resolved]
  - Stomatitis [Recovered/Resolved]

NARRATIVE: CASE EVENT DATE: 201702
